FAERS Safety Report 8048955-0 (Version None)
Quarter: 2012Q1

REPORT INFORMATION
  Report Type: 
  Country: None (occurrence: None)
  Receive Date: 20120117
  Receipt Date: 20120109
  Transmission Date: 20120608
  Serious: Yes (Hospitalization)
  Sender: FDA-Public Use
  Company Number: PHHY2012ES001802

PATIENT
  Age: 40 Year
  Sex: Male

DRUGS (6)
  1. ETHAMBUTOL HYDROCHLORIDE [Concomitant]
  2. ISONIAZID [Concomitant]
  3. MYCOPHENOLATE SODIUM [Suspect]
  4. RIFAMPICIN [Concomitant]
  5. HYDROXYCHLOROQUINE SULFATE [Concomitant]
  6. PREDNISONE TAB [Suspect]
     Indication: SYSTEMIC LUPUS ERYTHEMATOSUS
     Dosage: 10 MG, PER DAY

REACTIONS (3)
  - BRONCHOPNEUMONIA [None]
  - MYCOBACTERIAL INFECTION [None]
  - BURSITIS [None]
